FAERS Safety Report 4989682-3 (Version None)
Quarter: 2006Q2

REPORT INFORMATION
  Report Type: 
  Country: None (occurrence: None)
  Receive Date: 20060426
  Receipt Date: 20060412
  Transmission Date: 20061013
  Serious: Yes (Hospitalization)
  Sender: FDA-Public Use
  Company Number: US200603006367

PATIENT
  Age: 65 Year
  Sex: Male

DRUGS (4)
  1. INSULIN, ANIMAL(INSULIN, ANIMAL)VIAL [Suspect]
     Indication: DIABETES MELLITUS
     Dates: start: 19810101
  2. HUMAN INSULIN (RDNA ORIGIN) (HUMAN INSULIN (RDNA ORIGIN) UNKNOWN FORMU [Suspect]
     Indication: DIABETES MELLITUS
  3. NOVOLIN N [Concomitant]
  4. LANTUS [Concomitant]

REACTIONS (6)
  - ANGER [None]
  - BLOOD GLUCOSE ABNORMAL [None]
  - DIABETES MELLITUS INADEQUATE CONTROL [None]
  - MALAISE [None]
  - PHARMACEUTICAL PRODUCT COMPLAINT [None]
  - STENT PLACEMENT [None]
